FAERS Safety Report 12368458 (Version 1)
Quarter: 2016Q2

REPORT INFORMATION
  Report Type: Spontaneous
  Country: US (occurrence: US)
  Receive Date: 20160513
  Receipt Date: 20160513
  Transmission Date: 20160815
  Serious: No
  Sender: FDA-Public Use
  Company Number: US-PFIZER INC-2016232350

PATIENT
  Age: 15 Year
  Sex: Male
  Weight: 45.5 kg

DRUGS (4)
  1. SERTRALINE HCL [Suspect]
     Active Substance: SERTRALINE HYDROCHLORIDE
     Dosage: 50 MG, 2X/DAY (TAKING HALF IN THE MORNING AND HALF AT NIGHT)
     Route: 048
  2. ALBUTEROL. [Concomitant]
     Active Substance: ALBUTEROL
     Indication: HYPERSENSITIVITY
  3. SERTRALINE HCL [Suspect]
     Active Substance: SERTRALINE HYDROCHLORIDE
     Indication: ANXIETY
     Dosage: 100 MG, 1X/DAY
     Route: 048
  4. ALBUTEROL. [Concomitant]
     Active Substance: ALBUTEROL
     Indication: ASTHMA
     Dosage: INHALE AS NEEDED

REACTIONS (7)
  - Influenza [Unknown]
  - Drug screen false positive [Not Recovered/Not Resolved]
  - Disturbance in attention [Recovered/Resolved]
  - Abnormal behaviour [Recovered/Resolved]
  - Somnolence [Unknown]
  - Dysphemia [Recovered/Resolved]
  - Labyrinthitis [Unknown]

NARRATIVE: CASE EVENT DATE: 20160413
